FAERS Safety Report 7520391-2 (Version None)
Quarter: 2011Q2

REPORT INFORMATION
  Report Type: 
  Country: None (occurrence: None)
  Receive Date: 20110602
  Receipt Date: 20110120
  Transmission Date: 20111010
  Serious: Yes (Hospitalization)
  Sender: FDA-Public Use
  Company Number: US-BAYER-201034251NA

PATIENT
  Age: 32 Year
  Sex: Female
  Weight: 70 kg

DRUGS (12)
  1. YASMIN [Suspect]
     Indication: PREMENSTRUAL SYNDROME
     Dosage: UNK UNK, QD
     Route: 048
     Dates: start: 20070701, end: 20070801
  2. BUSPAR [Concomitant]
     Route: 048
  3. YAZ [Suspect]
     Indication: PREMENSTRUAL SYNDROME
     Dosage: UNK UNK, QD
     Route: 048
     Dates: start: 20070701, end: 20070801
  4. TRAMADOL HYDROCHLORIDE [Concomitant]
     Route: 048
  5. MULTI-VITAMINS [Concomitant]
     Route: 048
  6. VITAMIN B-12 [Concomitant]
  7. NEXIUM [Concomitant]
  8. IRON TABLETS [Concomitant]
     Route: 048
  9. HYDROCODONE BITARTRATE [Concomitant]
  10. FAMOTIDINE [Concomitant]
     Route: 048
  11. PRILOSEC [Concomitant]
     Route: 048
  12. LAMICTAL [Concomitant]
     Indication: DEPRESSION
     Route: 048

REACTIONS (2)
  - RENAL FAILURE [None]
  - INJURY [None]
